FAERS Safety Report 17732623 (Version 2)
Quarter: 2020Q3

REPORT INFORMATION
  Report Type: Spontaneous
  Country: US (occurrence: US)
  Receive Date: 20200501
  Receipt Date: 20200714
  Transmission Date: 20201102
  Serious: No
  Sender: FDA-Public Use
  Company Number: US-B.I. PHARMACEUTICALS,INC./RIDGEFIELD-2020-US-021933

PATIENT
  Sex: Male

DRUGS (1)
  1. COMBIVENT [Suspect]
     Active Substance: ALBUTEROL SULFATE\IPRATROPIUM BROMIDE
     Indication: CORONAVIRUS INFECTION
     Dosage: 20 MCG/100 MCG; DOSAGE FORM: INHALATION SPRAY
     Route: 065

REACTIONS (6)
  - Off label use [Unknown]
  - COVID-19 [Unknown]
  - Lung disorder [Unknown]
  - Malaise [Unknown]
  - Wheezing [Unknown]
  - Respiratory tract congestion [Unknown]

NARRATIVE: CASE EVENT DATE: 2020
